FAERS Safety Report 26119624 (Version 3)
Quarter: 2025Q4

REPORT INFORMATION
  Report Type: Report from Study
  Country: CA (occurrence: CA)
  Receive Date: 20251204
  Receipt Date: 20251218
  Transmission Date: 20260118
  Serious: Yes (Other)
  Sender: ABBVIE
  Company Number: CA-ABBVIE-6573131

PATIENT
  Age: 68 Year
  Sex: Male

DRUGS (8)
  1. LUPRON [Suspect]
     Active Substance: LEUPROLIDE ACETATE
     Indication: Prostate cancer
     Dosage: FORM STRENGTH: 22.5 MILLIGRAM?DOSE FORM- POWDER AND SOLVENT FOR SUSPENSION FOR INJECTION IN PRE-F...
     Route: 065
     Dates: start: 20230418
  2. LUPRON [Suspect]
     Active Substance: LEUPROLIDE ACETATE
     Dosage: FORM STRENGTH: 22.5 MILLIGRAM LAST DOSE: 11 SEP 2025?DOSE FORM- POWDER AND SOLVENT FOR SUSPENSION...
     Route: 065
  3. LUPRON [Suspect]
     Active Substance: LEUPROLIDE ACETATE
     Route: 065
     Dates: start: 20251212
  4. LUPRON [Suspect]
     Active Substance: LEUPROLIDE ACETATE
     Route: 065
     Dates: start: 20250911, end: 20250911
  5. BICALUTAMIDE [Concomitant]
     Active Substance: BICALUTAMIDE
     Indication: Product used for unknown indication
  6. METFORMIN [Concomitant]
     Active Substance: METFORMIN HYDROCHLORIDE
     Indication: Product used for unknown indication
  7. ROSUVASTATIN [Concomitant]
     Active Substance: ROSUVASTATIN
     Indication: Product used for unknown indication
  8. MICARDIS [Concomitant]
     Active Substance: TELMISARTAN
     Indication: Product used for unknown indication

REACTIONS (17)
  - Neoplasm malignant [Unknown]
  - Fall [Unknown]
  - Confusional state [Unknown]
  - Gait inability [Unknown]
  - Malaise [Unknown]
  - Hypersomnia [Unknown]
  - Urinary incontinence [Unknown]
  - Dehydration [Unknown]
  - Blood creatinine increased [Recovering/Resolving]
  - Asthenia [Unknown]
  - Muscle atrophy [Unknown]
  - Fatigue [Unknown]
  - Vertigo [Unknown]
  - Hypotension [Unknown]
  - Heart rate increased [Unknown]
  - Speech disorder [Unknown]
  - Skin abrasion [Unknown]

NARRATIVE: CASE EVENT DATE: 20250101
